FAERS Safety Report 14432689 (Version 16)
Quarter: 2019Q4

REPORT INFORMATION
  Report Type: Report from Study
  Country: BE (occurrence: BE)
  Receive Date: 20180124
  Receipt Date: 20191212
  Transmission Date: 20200122
  Serious: Yes (Other)
  Sender: FDA-Public Use
  Company Number: BE-PFIZER INC-2018025322

PATIENT
  Age: 38 Year
  Sex: Male

DRUGS (8)
  1. FLUOROURACIL. [Suspect]
     Active Substance: FLUOROURACIL
     Indication: COLORECTAL CANCER METASTATIC
     Dosage: 1 DF, CYCLIC (EVERY 2 WEEKS)
     Route: 042
     Dates: start: 20170703, end: 20180108
  2. LEUCOVORIN /00566701/ [Suspect]
     Active Substance: LEUCOVORIN
     Indication: COLORECTAL CANCER METASTATIC
     Dosage: 1 DF, CYCLIC (EVERY 2 WEEKS)
     Route: 042
     Dates: start: 20170703, end: 20180108
  3. DAFALGAN [Concomitant]
     Active Substance: ACETAMINOPHEN
  4. SOLU-MEDROL [Suspect]
     Active Substance: METHYLPREDNISOLONE SODIUM SUCCINATE
     Indication: COLORECTAL CANCER METASTATIC
     Dosage: UNK
  5. BEVACIZUMAB. [Suspect]
     Active Substance: BEVACIZUMAB
     Dosage: 1 DF, CYCLIC (EVERY 2 WEEKS)
     Route: 042
     Dates: start: 20170918
  6. PEGINTERFERON ALFA-2A. [Suspect]
     Active Substance: PEGINTERFERON ALFA-2A
     Indication: COLORECTAL CANCER METASTATIC
     Dosage: 1 (UNIT UNKNOWN)
     Route: 065
  7. BEVACIZUMAB. [Suspect]
     Active Substance: BEVACIZUMAB
     Indication: COLORECTAL CANCER METASTATIC
     Dosage: 1 DF, CYCLIC (EVERY 2  WEEKS)
     Route: 042
     Dates: start: 20170703, end: 20180108
  8. IRINOTECAN HCL [Suspect]
     Active Substance: IRINOTECAN HYDROCHLORIDE
     Indication: COLORECTAL CANCER METASTATIC
     Dosage: 1 DF, CYCLIC (EVERY 2 WEEKS)
     Route: 042
     Dates: start: 20170703, end: 20180108

REACTIONS (22)
  - Pain of skin [Not Recovered/Not Resolved]
  - Nausea [Recovered/Resolved]
  - Oropharyngeal pain [Recovered/Resolved]
  - Osteonecrosis [Not Recovered/Not Resolved]
  - Scab [Recovered/Resolved]
  - Decreased appetite [Recovered/Resolved]
  - Vena cava thrombosis [Not Recovered/Not Resolved]
  - Dermatitis [Recovered/Resolved]
  - Pruritus genital [Not Recovered/Not Resolved]
  - Diarrhoea [Recovered/Resolved]
  - Stomatitis [Recovered/Resolved]
  - Dyspnoea [Recovered/Resolved]
  - Dry mouth [Not Recovered/Not Resolved]
  - Lacrimation increased [Not Recovered/Not Resolved]
  - Respiratory tract infection [Unknown]
  - Proteinuria [Recovered/Resolved]
  - Nasopharyngitis [Unknown]
  - Drug hypersensitivity [Recovered/Resolved]
  - Vomiting [Recovered/Resolved]
  - Mouth ulceration [Recovered/Resolved]
  - Neutrophil count decreased [Recovered/Resolved]
  - Hyperventilation [Recovered/Resolved]

NARRATIVE: CASE EVENT DATE: 20170703
